FAERS Safety Report 11391732 (Version 4)
Quarter: 2015Q4

REPORT INFORMATION
  Report Type: Spontaneous
  Country: US (occurrence: US)
  Receive Date: 20150818
  Receipt Date: 20151217
  Transmission Date: 20160304
  Serious: No
  Sender: FDA-Public Use
  Company Number: US-PFIZER INC-2015266912

PATIENT
  Age: 62 Year
  Sex: Female

DRUGS (3)
  1. GABAPENTIN. [Suspect]
     Active Substance: GABAPENTIN
     Indication: FIBROMYALGIA
     Dosage: UNK, 3X/DAY
     Dates: start: 201502
  2. GABAPENTIN. [Suspect]
     Active Substance: GABAPENTIN
     Indication: KYPHOSIS
  3. GABAPENTIN. [Suspect]
     Active Substance: GABAPENTIN
     Indication: OSTEOPOROSIS

REACTIONS (22)
  - Nausea [Unknown]
  - Anger [Unknown]
  - Dizziness [Unknown]
  - Musculoskeletal pain [Unknown]
  - Hangover [Unknown]
  - Fatigue [Unknown]
  - Arthralgia [Unknown]
  - Neck pain [Unknown]
  - Disturbance in attention [Unknown]
  - Back pain [Unknown]
  - Drug intolerance [Unknown]
  - Burning sensation [Unknown]
  - Impaired driving ability [Unknown]
  - Somnolence [Unknown]
  - Feeling abnormal [Unknown]
  - Activities of daily living impaired [Unknown]
  - Frustration [Unknown]
  - Pain in extremity [Unknown]
  - Disease progression [Unknown]
  - Gait disturbance [Unknown]
  - Drug ineffective [Unknown]
  - Depressed mood [Unknown]

NARRATIVE: CASE EVENT DATE: 201502
